FAERS Safety Report 7043620-0 (Version None)
Quarter: 2010Q4

REPORT INFORMATION
  Report Type: 
  Country: None (occurrence: None)
  Receive Date: 20101013
  Receipt Date: 20101012
  Transmission Date: 20110411
  Serious: Yes (Other)
  Sender: FDA-Public Use
  Company Number: B0677675A

PATIENT
  Sex: Male

DRUGS (2)
  1. VARILRIX [Suspect]
     Indication: PROPHYLAXIS
     Route: 065
     Dates: start: 20080812, end: 20080812
  2. ACYCLOVIR [Suspect]
     Route: 048
     Dates: start: 20100901, end: 20100901

REACTIONS (5)
  - DRUG HYPERSENSITIVITY [None]
  - PYREXIA [None]
  - RASH PAPULAR [None]
  - VACCINATION FAILURE [None]
  - VARICELLA [None]
